FAERS Safety Report 17599796 (Version 1)
Quarter: 2020Q1

REPORT INFORMATION
  Report Type: Report from Study
  Country: GB (occurrence: GB)
  Receive Date: 20200330
  Receipt Date: 20200330
  Transmission Date: 20200409
  Serious: Yes (Hospitalization, Other)
  Sender: FDA-Public Use
  Company Number: GB-MYLANLABS-2020M1032987

PATIENT
  Sex: Female

DRUGS (14)
  1. IBUPROFEN. [Concomitant]
     Active Substance: IBUPROFEN
     Dosage: 400 MILLIGRAM
     Route: 048
     Dates: start: 201504, end: 20151113
  2. AMITRIPTYLINE [Concomitant]
     Active Substance: AMITRIPTYLINE
     Dosage: 10 MILLIGRAM
     Route: 048
     Dates: start: 201504, end: 201504
  3. TRASTUZUMAB. [Suspect]
     Active Substance: TRASTUZUMAB
     Dosage: 600 MILLIGRAM
     Route: 058
     Dates: start: 20151113, end: 20160225
  4. DENOSUMAB [Concomitant]
     Active Substance: DENOSUMAB
     Dosage: 120 MILLIGRAM
     Route: 058
     Dates: start: 20151019
  5. ZOLEDRONIC ACID [Concomitant]
     Active Substance: ZOLEDRONIC ACID
     Indication: VITAMIN D DECREASED
     Dosage: 4 MILLIGRAM, MONTHLY
     Route: 042
     Dates: start: 20150508, end: 20150911
  6. COCODAMOL [Concomitant]
     Active Substance: ACETAMINOPHEN\CODEINE PHOSPHATE
     Dosage: UNK
     Route: 048
     Dates: start: 201504
  7. TRASTUZUMAB. [Suspect]
     Active Substance: TRASTUZUMAB
     Indication: HER-2 POSITIVE BREAST CANCER
     Dosage: 600 MILLIGRAM
     Route: 058
     Dates: start: 20160324
  8. VINORELBINE [Suspect]
     Active Substance: VINORELBINE TARTRATE
     Indication: HER-2 POSITIVE BREAST CANCER
     Dosage: 40 MILLIGRAM
     Route: 042
     Dates: start: 20160324
  9. CALCICHEW [Concomitant]
     Active Substance: CALCIUM CARBONATE
     Indication: BLOOD CALCIUM DECREASED
     Dosage: 1.25 GRAM
     Route: 048
     Dates: start: 20151020
  10. ERIBULIN [Suspect]
     Active Substance: ERIBULIN
     Indication: HER-2 POSITIVE BREAST CANCER
     Dosage: 1.8 GRAM
     Route: 042
     Dates: start: 20160602
  11. THYROXINE [Concomitant]
     Active Substance: LEVOTHYROXINE
     Dosage: 100 MICROGRAM, QD
     Route: 048
     Dates: start: 1995
  12. ENZALUTAMIDE [Suspect]
     Active Substance: ENZALUTAMIDE
     Indication: HER-2 POSITIVE BREAST CANCER
     Dosage: 160 MILLIGRAM, QD
     Route: 048
     Dates: start: 20151113, end: 20160225
  13. TRASTUZUMAB EMTANSINE [Suspect]
     Active Substance: ADO-TRASTUZUMAB EMTANSINE
     Indication: HER-2 POSITIVE BREAST CANCER
     Dosage: 240 MILLIGRAM
     Route: 042
     Dates: start: 20150508
  14. PARACETAMOL [Concomitant]
     Active Substance: ACETAMINOPHEN
     Indication: BONE PAIN
     Dosage: 1 GRAM
     Route: 048
     Dates: start: 201504, end: 201507

REACTIONS (22)
  - Neuropathy peripheral [Recovered/Resolved]
  - Musculoskeletal pain [Recovered/Resolved]
  - Retching [Recovering/Resolving]
  - Nausea [Recovering/Resolving]
  - Tachycardia [Recovered/Resolved]
  - Pain in extremity [Recovered/Resolved]
  - Headache [Not Recovered/Not Resolved]
  - Anxiety [Recovered/Resolved]
  - Epistaxis [Not Recovered/Not Resolved]
  - Back pain [Recovered/Resolved]
  - Musculoskeletal pain [Unknown]
  - Decreased appetite [Not Recovered/Not Resolved]
  - Chest pain [Recovered/Resolved]
  - Spinal pain [Recovered/Resolved]
  - Palpitations [Recovered/Resolved]
  - Musculoskeletal discomfort [Recovered/Resolved]
  - Cough [Recovered/Resolved]
  - Gingivitis [Recovered/Resolved]
  - Blood calcium decreased [Recovered/Resolved]
  - Axillary pain [Recovered/Resolved]
  - Neck pain [Recovered/Resolved]
  - Arthralgia [Recovered/Resolved]

NARRATIVE: CASE EVENT DATE: 20150731
